FAERS Safety Report 8101834-2 (Version None)
Quarter: 2012Q1

REPORT INFORMATION
  Report Type: 
  Country: None (occurrence: None)
  Receive Date: 20120131
  Receipt Date: 20120123
  Transmission Date: 20120608
  Serious: No
  Sender: FDA-Public Use
  Company Number: US-B.I. PHARMACEUTICALS,INC./RIDGEFIELD-2012-BP-01350BP

PATIENT
  Sex: Female

DRUGS (9)
  1. LEVOXYL [Concomitant]
     Indication: HYPOTHYROIDISM
     Dosage: 88 MCG
     Route: 048
     Dates: start: 19970101
  2. ESTRING [Concomitant]
     Indication: HORMONE LEVEL ABNORMAL
     Dates: start: 20100101
  3. SPIRIVA [Suspect]
     Indication: CHRONIC OBSTRUCTIVE PULMONARY DISEASE
     Route: 055
     Dates: start: 20120115
  4. DEPAKOTE [Concomitant]
     Indication: DEPRESSION
     Route: 048
     Dates: start: 20020101
  5. PROMETRIN [Concomitant]
     Indication: OSTEOPENIA
     Dosage: 100 MG
     Route: 048
     Dates: start: 20010101
  6. ACETAMINOPHEN [Concomitant]
     Indication: BACK PAIN
     Route: 048
     Dates: start: 20050101
  7. CELEXA [Concomitant]
     Indication: DEPRESSION
     Dosage: 10 MG
     Route: 048
     Dates: start: 20020101
  8. ESTRACE [Concomitant]
     Indication: OSTEOPENIA
     Dosage: 1 MG
     Route: 048
     Dates: start: 20010101
  9. ALLEGRA [Concomitant]
     Indication: SEASONAL ALLERGY
     Route: 048

REACTIONS (3)
  - DRY MOUTH [None]
  - FEELING JITTERY [None]
  - DYSPHONIA [None]
